FAERS Safety Report 22541695 (Version 1)
Quarter: 2023Q2

REPORT INFORMATION
  Report Type: Spontaneous
  Country: PL (occurrence: None)
  Receive Date: 20230609
  Receipt Date: 20230609
  Transmission Date: 20230722
  Serious: Yes (Hospitalization, Other)
  Sender: FDA-Public Use
  Company Number: 2023A131548

PATIENT
  Age: 67 Year
  Sex: Male

DRUGS (5)
  1. DAPAGLIFLOZIN [Suspect]
     Active Substance: DAPAGLIFLOZIN
     Indication: Glomerulonephritis
     Route: 048
     Dates: start: 20230301
  2. RAMIPRIL [Concomitant]
     Active Substance: RAMIPRIL
     Dosage: 10.0MG UNKNOWN
  3. TRIFAS [Concomitant]
     Dosage: 10.0MG UNKNOWN
  4. ALLOPURINOL [Concomitant]
     Active Substance: ALLOPURINOL
     Dosage: 100.0MG UNKNOWN
  5. PRIMACOR [Concomitant]
     Active Substance: MILRINONE LACTATE
     Dosage: 10.0MG UNKNOWN

REACTIONS (8)
  - IgA nephropathy [Unknown]
  - Gastric ulcer [Unknown]
  - Ulcer [Unknown]
  - Off label use [Unknown]
  - Blood creatinine increased [Unknown]
  - Blood urea increased [Unknown]
  - Proteinuria [Unknown]
  - Condition aggravated [Unknown]

NARRATIVE: CASE EVENT DATE: 20230501
